FAERS Safety Report 4938813-X (Version None)
Quarter: 2006Q1

REPORT INFORMATION
  Report Type: 
  Country: None (occurrence: None)
  Receive Date: 20060306
  Receipt Date: 20060221
  Transmission Date: 20060701
  Serious: Yes (Other)
  Sender: FDA-Public Use
  Company Number: 2006026849

PATIENT
  Age: 65 Year
  Sex: Male
  Weight: 145.151 kg

DRUGS (2)
  1. VIAGRA [Suspect]
     Indication: ERECTILE DYSFUNCTION
     Dosage: 100 MG
  2. LISINOPRIL [Concomitant]

REACTIONS (5)
  - BLOOD PRESSURE INADEQUATELY CONTROLLED [None]
  - DYSPNOEA [None]
  - HAEMATOCRIT DECREASED [None]
  - PULMONARY HYPERTENSION [None]
  - ULCER HAEMORRHAGE [None]
